FAERS Safety Report 5793266-7 (Version None)
Quarter: 2008Q2

REPORT INFORMATION
  Report Type: 
  Country: None (occurrence: None)
  Receive Date: 20080626
  Receipt Date: 20080626
  Transmission Date: 20081010
  Serious: Yes (Life-Threatening, Hospitalization)
  Sender: FDA-Public Use
  Company Number: None

PATIENT
  Age: 51 Year
  Sex: Female
  Weight: 66 kg

DRUGS (9)
  1. DANTOLENE 100 MG [Suspect]
     Indication: MULTIPLE SCLEROSIS
     Dosage: 100 MG QID PO, AFTER 8/07-6/3/08
     Route: 048
     Dates: end: 20080603
  2. ZOLOFT [Concomitant]
  3. WELLBUTRIN [Concomitant]
  4. PROTONIX [Concomitant]
  5. ZANAFLEX [Concomitant]
  6. PROVIGIL [Concomitant]
  7. BACLOFEN [Concomitant]
  8. AMBIEN [Concomitant]
  9. NORCO [Concomitant]

REACTIONS (7)
  - ASPIRATION PLEURAL CAVITY ABNORMAL [None]
  - CARDIAC TAMPONADE [None]
  - HAEMODYNAMIC INSTABILITY [None]
  - PERICARDIAL EFFUSION [None]
  - PLEURAL EFFUSION [None]
  - PYREXIA [None]
  - SINUS TACHYCARDIA [None]
